FAERS Safety Report 13075443 (Version 2)
Quarter: 2017Q1

REPORT INFORMATION
  Report Type: Report from Study
  Country: US (occurrence: US)
  Receive Date: 20161230
  Receipt Date: 20170104
  Transmission Date: 20170428
  Serious: No
  Sender: FDA-Public Use
  Company Number: US-AMGEN-USASL2016183877

PATIENT
  Age: 34 Year
  Sex: Male

DRUGS (1)
  1. ENBREL [Suspect]
     Active Substance: ETANERCEPT
     Indication: PSORIASIS
     Dosage: 50 MG, 2 TIMES/WK
     Route: 065
     Dates: start: 201611

REACTIONS (7)
  - Erythema [Unknown]
  - Paraesthesia oral [Unknown]
  - Psoriasis [Unknown]
  - Oral discomfort [Unknown]
  - Lip swelling [Unknown]
  - Swelling face [Unknown]
  - Oral pain [Unknown]

NARRATIVE: CASE EVENT DATE: 20161225
